FAERS Safety Report 6193410-6 (Version None)
Quarter: 2009Q2

REPORT INFORMATION
  Report Type: 
  Country: None (occurrence: None)
  Receive Date: 20090518
  Receipt Date: 20080530
  Transmission Date: 20091009
  Serious: No
  Sender: FDA-Public Use
  Company Number: US-ABBOTT-08P-163-0454355-00

PATIENT
  Age: 50 Year
  Sex: Female

DRUGS (2)
  1. AZMACORT [Suspect]
     Indication: ASTHMA
     Route: 055
  2. MEDROXYPROGESTERONE ESTRATEST [Concomitant]
     Indication: HORMONE REPLACEMENT THERAPY

REACTIONS (2)
  - DRUG INEFFECTIVE [None]
  - FEELING ABNORMAL [None]
